FAERS Safety Report 5488177-0 (Version None)
Quarter: 2007Q3

REPORT INFORMATION
  Report Type: 
  Country: None (occurrence: None)
  Receive Date: 20070927
  Receipt Date: 20061122
  Transmission Date: 20080115
  Serious: Yes (Hospitalization)
  Sender: FDA-Public Use
  Company Number: FABR-11755

PATIENT
  Age: 46 Year
  Sex: Male

DRUGS (14)
  1. FABRAZYME [Suspect]
     Indication: FABRY'S DISEASE
     Dosage: 70 MG Q2WKS IV
     Route: 042
     Dates: start: 20030715
  2. HYDROXYZINE HC1 [Concomitant]
  3. CYCLOSPORINE [Concomitant]
  4. NORVASC [Concomitant]
  5. VASOTEC [Concomitant]
  6. PREDNISONE TAB [Concomitant]
  7. TEGRETOL [Concomitant]
  8. PERCOCET [Concomitant]
  9. FENTANYL [Concomitant]
  10. METOCLOPRAMIDE HC1 [Concomitant]
  11. ZOFRAN [Concomitant]
  12. RESTORIL [Concomitant]
  13. VALIUM [Concomitant]
  14. BUMEX [Concomitant]

REACTIONS (3)
  - CHILLS [None]
  - HYPERTENSION [None]
  - OEDEMA PERIPHERAL [None]
